FAERS Safety Report 9116721 (Version 2)
Quarter: 2013Q1

REPORT INFORMATION
  Report Type: Spontaneous
  Country: RO (occurrence: RO)
  Receive Date: 20130225
  Receipt Date: 20130307
  Transmission Date: 20140127
  Serious: Yes (Other)
  Sender: FDA-Public Use
  Company Number: RO-NOVOPROD-371165

PATIENT
  Age: 25 Year
  Sex: Female

DRUGS (3)
  1. INSULATARD NPH HUMAN [Suspect]
     Indication: DIABETES MELLITUS
     Dosage: 1 DOSE
     Route: 064
  2. ACTRAPID [Suspect]
     Indication: DIABETES MELLITUS
     Dosage: 3 DOSES
     Route: 064
  3. DEXAMETHASONE [Concomitant]
     Route: 064

REACTIONS (2)
  - Premature delivery [Unknown]
  - Exposure during pregnancy [Recovered/Resolved]
